FAERS Safety Report 6599324-1 (Version None)
Quarter: 2010Q1

REPORT INFORMATION
  Report Type: 
  Country: None (occurrence: None)
  Receive Date: 20100217
  Receipt Date: 20100127
  Transmission Date: 20100710
  Serious: Yes (Disabling)
  Sender: FDA-Public Use
  Company Number: 2009AC000462

PATIENT
  Age: 63 Year
  Sex: Female

DRUGS (27)
  1. DIGOXIN [Suspect]
     Dosage: PO
     Route: 048
     Dates: start: 20060101
  2. ASPIRIN [Concomitant]
  3. MULTI-VITAMIN [Concomitant]
  4. SYNTHROID [Concomitant]
  5. TYLENOL ARTHRITIS EXTENDED RELEASE [Concomitant]
  6. TRICOR [Concomitant]
  7. FISH OIL [Concomitant]
  8. ISOSORBIDE [Concomitant]
  9. ZETIA [Concomitant]
  10. AZITHROMYC [Concomitant]
  11. CRESTOR [Concomitant]
  12. FLUOCINONIDE [Concomitant]
  13. PREDNISONE [Concomitant]
  14. BENZONATATE [Concomitant]
  15. CIPROFLOXACIN [Concomitant]
  16. SULFAMETHOXAZOLE AND TRIMETHOPRIM [Concomitant]
  17. THYROID TAB [Concomitant]
  18. LISINOPRIL [Concomitant]
  19. NITROGLYCERIN [Concomitant]
  20. TOBRAMYCIN [Concomitant]
  21. HYDROCHLOROTHIAZIDE [Concomitant]
  22. COLCHICINE [Concomitant]
  23. MECLIZINE [Concomitant]
  24. FLUTICASONE [Concomitant]
  25. NIASPAN [Concomitant]
  26. ATENOLOL [Concomitant]
  27. CLARITHROMYCIN [Concomitant]

REACTIONS (17)
  - ANXIETY DISORDER [None]
  - ARRHYTHMIA SUPRAVENTRICULAR [None]
  - ARTHRITIS [None]
  - DEPRESSION [None]
  - ECONOMIC PROBLEM [None]
  - FIBROMYALGIA [None]
  - HEART RATE INCREASED [None]
  - HYPERLIPIDAEMIA [None]
  - HYPERTENSION [None]
  - IMPAIRED WORK ABILITY [None]
  - MIXED HYPERLIPIDAEMIA [None]
  - MULTIPLE INJURIES [None]
  - PAIN [None]
  - PALPITATIONS [None]
  - SINUS TACHYCARDIA [None]
  - SUPRAVENTRICULAR EXTRASYSTOLES [None]
  - SYSTEMIC LUPUS ERYTHEMATOSUS [None]
